FAERS Safety Report 4824553-4 (Version None)
Quarter: 2005Q4

REPORT INFORMATION
  Report Type: 
  Country: None (occurrence: None)
  Receive Date: 20051108
  Receipt Date: 20051020
  Transmission Date: 20060501
  Serious: Yes (Death)
  Sender: FDA-Public Use
  Company Number: US_0412109506

PATIENT
  Age: 84 Year
  Sex: Female
  Weight: 53 kg

DRUGS (3)
  1. FORTEO [Suspect]
     Indication: OSTEOPOROSIS
     Dosage: 20 UG/1 DAY
     Dates: start: 20040817
  2. HIDANTAL (PHENYTOIN) [Concomitant]
  3. ARELIX (OIRETANIDE) [Concomitant]

REACTIONS (1)
  - PAIN IN EXTREMITY [None]
